FAERS Safety Report 4878136-0 (Version None)
Quarter: 2005Q4

REPORT INFORMATION
  Report Type: 
  Country: None (occurrence: None)
  Receive Date: 20051209
  Receipt Date: 20050817
  Transmission Date: 20060501
  Serious: No
  Sender: FDA-Public Use
  Company Number: SUS1-2005-00628

PATIENT
  Age: 53 Year
  Sex: Male
  Weight: 113.4 kg

DRUGS (5)
  1. FOSRENOL [Suspect]
     Indication: BLOOD PHOSPHORUS INCREASED
     Dosage: TWO 250 TABLETS 3X/DAY, ORAL
     Route: 048
     Dates: start: 20050501
  2. ADVAIR (SALMETEROL XINAFOATE, FLUTICASONE PROPIONATE) [Concomitant]
  3. ALBUTEROL [Concomitant]
  4. IRON (IRON) [Concomitant]
  5. WELLBUTRIN [Concomitant]

REACTIONS (1)
  - ARTERIOVENOUS FISTULA SITE COMPLICATION [None]
